FAERS Safety Report 5330921-7 (Version None)
Quarter: 2007Q2

REPORT INFORMATION
  Report Type: 
  Country: None (occurrence: None)
  Receive Date: 20070522
  Receipt Date: 20070516
  Transmission Date: 20071010
  Serious: Yes (Other)
  Sender: FDA-Public Use
  Company Number: FI-ELI_LILLY_AND_COMPANY-FI200705004106

PATIENT
  Age: 24 Year
  Sex: Male

DRUGS (7)
  1. ZYPREXA [Suspect]
     Indication: SCHIZOPHRENIA
     Dosage: 20 MG, DAILY (1/D)
     Route: 048
     Dates: start: 20030401
  2. ZYPREXA [Suspect]
     Dosage: 40 MG, UNK
     Dates: start: 20030401
  3. LEVOZIN [Concomitant]
     Indication: SCHIZOPHRENIA
     Dosage: 100 MG 1/DAILY
     Route: 048
  4. RIVATRIL [Concomitant]
     Indication: SCHIZOPHRENIA
     Dosage: 1.5 MG, DAILY (1/D)
     Route: 048
  5. CHLORMEZANONE W/DIAZEPAM [Concomitant]
     Indication: SCHIZOPHRENIA
     Dosage: 10 MG, DAILY (1/D)
     Route: 048
  6. TENOX [Concomitant]
     Indication: SCHIZOPHRENIA
     Dosage: 20 MG, DAILY (1/D)
     Route: 048
  7. CIPRALEX [Concomitant]
     Indication: SCHIZOPHRENIA
     Dosage: 50 MG, DAILY (1/D)
     Route: 048

REACTIONS (2)
  - HEART RATE IRREGULAR [None]
  - PRESCRIBED OVERDOSE [None]
